FAERS Safety Report 5763216-8 (Version None)
Quarter: 2008Q2

REPORT INFORMATION
  Report Type: 
  Country: None (occurrence: None)
  Receive Date: 20080609
  Receipt Date: 20080528
  Transmission Date: 20081010
  Serious: Yes (Other)
  Sender: FDA-Public Use
  Company Number: BR-PFIZER INC-2008046018

PATIENT
  Sex: Male
  Weight: 66 kg

DRUGS (2)
  1. FRONTAL [Suspect]
     Indication: INITIAL INSOMNIA
     Route: 048
  2. PAROXETINE HCL [Concomitant]
     Route: 048
     Dates: start: 20080201, end: 20080201

REACTIONS (10)
  - ABDOMINAL PAIN UPPER [None]
  - ASTHENIA [None]
  - DEPRESSION [None]
  - DIZZINESS [None]
  - HEAD DISCOMFORT [None]
  - HEART RATE INCREASED [None]
  - NEOPLASM MALIGNANT [None]
  - NERVOUSNESS [None]
  - ORAL DISCOMFORT [None]
  - VOMITING [None]
